FAERS Safety Report 19762031 (Version 1)
Quarter: 2021Q3

REPORT INFORMATION
  Report Type: Spontaneous
  Country: IT (occurrence: IT)
  Receive Date: 20210830
  Receipt Date: 20210830
  Transmission Date: 20211014
  Serious: Yes (Death, Other)
  Sender: FDA-Public Use
  Company Number: IT-SHILPA MEDICARE LIMITED-SML-IT-2021-01005

PATIENT
  Age: 71 Year
  Sex: Female

DRUGS (1)
  1. CAPECITABINA, UNKNOWN [Suspect]
     Active Substance: CAPECITABINE
     Indication: PANCREATIC CARCINOMA
     Route: 065

REACTIONS (3)
  - Neoplasm progression [Fatal]
  - Product use in unapproved indication [Unknown]
  - COVID-19 [Unknown]
